FAERS Safety Report 6137737-2 (Version None)
Quarter: 2009Q1

REPORT INFORMATION
  Report Type: 
  Country: None (occurrence: None)
  Receive Date: 20090331
  Receipt Date: 20080521
  Transmission Date: 20090719
  Serious: No
  Sender: FDA-Public Use
  Company Number: US-KINGPHARMUSA00001-K200800595

PATIENT
  Age: 81 Year
  Sex: Male

DRUGS (1)
  1. THROMBIN NOS [Suspect]
     Dosage: UNK, SINGLE
     Dates: start: 20080501, end: 20080501

REACTIONS (2)
  - NO ADVERSE EVENT [None]
  - POOR QUALITY DRUG ADMINISTERED [None]
